FAERS Safety Report 14377607 (Version 2)
Quarter: 2018Q2

REPORT INFORMATION
  Report Type: Spontaneous
  Country: US (occurrence: US)
  Receive Date: 20180111
  Receipt Date: 20180402
  Transmission Date: 20180711
  Serious: Yes (Other)
  Sender: FDA-Public Use
  Company Number: US-BAYER-2018-006079

PATIENT
  Age: 27 Year
  Sex: Female

DRUGS (3)
  1. MIRENA [Suspect]
     Active Substance: LEVONORGESTREL
     Indication: CONTRACEPTION
     Dosage: 20 MCG/24HR, CONT
     Route: 015
     Dates: start: 20120823, end: 201711
  2. ETONOGESTREL [Concomitant]
     Active Substance: ETONOGESTREL
     Indication: CONTRACEPTION
     Dosage: UNK
  3. MIRENA [Suspect]
     Active Substance: LEVONORGESTREL
     Indication: CONTRACEPTION

REACTIONS (6)
  - Pregnancy with contraceptive device [None]
  - Drug ineffective [None]
  - Device use issue [None]
  - Uterine perforation [Recovered/Resolved]
  - Abdominal pain [None]
  - Procedural pain [None]

NARRATIVE: CASE EVENT DATE: 2012
